FAERS Safety Report 5719672-4 (Version None)
Quarter: 2008Q2

REPORT INFORMATION
  Report Type: 
  Country: None (occurrence: None)
  Receive Date: 20080424
  Receipt Date: 20080410
  Transmission Date: 20081010
  Serious: Yes (Other)
  Sender: FDA-Public Use
  Company Number: US023251

PATIENT
  Sex: Female

DRUGS (5)
  1. ACTIQ [Suspect]
     Indication: BACK PAIN
     Dosage: 200 UG BUCCAL
     Route: 002
  2. ACTIQ [Suspect]
     Indication: MIGRAINE
     Dosage: 200 UG BUCCAL
     Route: 002
  3. ACTIQ [Suspect]
     Indication: NECK PAIN
     Dosage: 200 UG BUCCAL
     Route: 002
  4. VICODIN [Concomitant]
  5. KADIAN [Concomitant]

REACTIONS (1)
  - ABNORMAL BEHAVIOUR [None]
